FAERS Safety Report 14977937 (Version 3)
Quarter: 2018Q4

REPORT INFORMATION
  Report Type: Spontaneous
  Country: US (occurrence: US)
  Receive Date: 20180606
  Receipt Date: 20181211
  Transmission Date: 20190204
  Serious: No
  Sender: FDA-Public Use
  Company Number: US-PFIZER INC-2018062486

PATIENT
  Age: 17 Year
  Sex: Male
  Weight: 63.49 kg

DRUGS (6)
  1. GENOTROPIN [Suspect]
     Active Substance: SOMATROPIN
     Dosage: 1.6 UG, DAILY
     Dates: start: 201801
  2. GENOTROPIN [Suspect]
     Active Substance: SOMATROPIN
     Dosage: UNK, (SIX DAYS AND OFF ONE DAY)
     Dates: end: 20180708
  3. GENOTROPIN [Suspect]
     Active Substance: SOMATROPIN
     Dosage: 2 UG, UNK
     Dates: end: 201801
  4. GENOTROPIN [Suspect]
     Active Substance: SOMATROPIN
     Dosage: 1.2 MG (PER DAY FOR 6 DAYS AND ONE DAY OFF)
     Route: 058
  5. GENOTROPIN [Suspect]
     Active Substance: SOMATROPIN
     Indication: HORMONE REPLACEMENT THERAPY
     Dosage: 2 MG (6 DAYS A WEEK)
     Dates: start: 20170204
  6. GENOTROPIN [Suspect]
     Active Substance: SOMATROPIN
     Dosage: 1.6 UG, DAILY
     Dates: start: 201703

REACTIONS (1)
  - Insulin-like growth factor increased [Unknown]
